FAERS Safety Report 25844827 (Version 2)
Quarter: 2025Q4

REPORT INFORMATION
  Report Type: Report from Study
  Country: US (occurrence: US)
  Receive Date: 20250925
  Receipt Date: 20251209
  Transmission Date: 20260118
  Serious: Yes (Hospitalization, Other)
  Sender: ABBVIE
  Company Number: US-ABBVIE-6475470

PATIENT
  Age: 69 Year
  Sex: Female

DRUGS (1)
  1. CREON [Suspect]
     Active Substance: PANCRELIPASE AMYLASE\PANCRELIPASE LIPASE\PANCRELIPASE PROTEASE
     Indication: Pancreatic failure
     Route: 048
     Dates: start: 20250825

REACTIONS (8)
  - Ankle operation [Unknown]
  - Musculoskeletal disorder [Unknown]
  - Gait inability [Unknown]
  - Fall [Unknown]
  - Rib fracture [Unknown]
  - Hypoaesthesia [Unknown]
  - Lower limb fracture [Recovered/Resolved]
  - Lower limb fracture [Recovering/Resolving]

NARRATIVE: CASE EVENT DATE: 20250101
